FAERS Safety Report 11744793 (Version 4)
Quarter: 2016Q1

REPORT INFORMATION
  Report Type: Report from Study
  Country: US (occurrence: US)
  Receive Date: 20151116
  Receipt Date: 20160219
  Transmission Date: 20160525
  Serious: No
  Sender: FDA-Public Use
  Company Number: US-AMGEN-USASL2015118567

PATIENT
  Age: 49 Year
  Sex: Female

DRUGS (1)
  1. ENBREL [Suspect]
     Active Substance: ETANERCEPT
     Indication: RHEUMATOID ARTHRITIS
     Dosage: 50 MG, QWK
     Route: 065
     Dates: start: 201509

REACTIONS (15)
  - Vision blurred [Unknown]
  - Dysgeusia [Unknown]
  - Injection site pruritus [Not Recovered/Not Resolved]
  - Injection site erythema [Unknown]
  - Injection site reaction [Not Recovered/Not Resolved]
  - Arthralgia [Recovering/Resolving]
  - Injection site discolouration [Not Recovered/Not Resolved]
  - Feeling abnormal [Unknown]
  - Injection site urticaria [Unknown]
  - Influenza [Unknown]
  - Gait disturbance [Unknown]
  - Tooth disorder [Unknown]
  - Myalgia [Not Recovered/Not Resolved]
  - Mastication disorder [Unknown]
  - Fatigue [Unknown]

NARRATIVE: CASE EVENT DATE: 2015
